FAERS Safety Report 8352224-9 (Version None)
Quarter: 2012Q2

REPORT INFORMATION
  Report Type: 
  Country: None (occurrence: None)
  Receive Date: 20120511
  Receipt Date: 20120502
  Transmission Date: 20120825
  Serious: Yes (Hospitalization)
  Sender: FDA-Public Use
  Company Number: AR-JNJFOC-20120509376

PATIENT
  Age: 84 Year
  Sex: Female

DRUGS (1)
  1. XARELTO [Suspect]
     Indication: HIP SURGERY
     Route: 048
     Dates: start: 20120429, end: 20120501

REACTIONS (4)
  - CHEST PAIN [None]
  - DYSPNOEA [None]
  - HEPATIC FAILURE [None]
  - CARDIAC FAILURE [None]
